FAERS Safety Report 9183973 (Version 1)
Quarter: 2012Q4

REPORT INFORMATION
  Report Type: 
  Country: CN (occurrence: CN)
  Receive Date: 20121031
  Receipt Date: 20121031
  Transmission Date: 20130627
  Serious: Yes (Other)
  Sender: FDA-Public Use
  Company Number: CN-ELI_LILLY_AND_COMPANY-CN201210006471

PATIENT
  Age: 50 None
  Sex: Male
  Weight: 70 kg

DRUGS (2)
  1. HUMULIN 30% REGULAR, 70% NPH [Suspect]
     Indication: DIABETES MELLITUS
     Dosage: 33 u, each morning
     Route: 058
     Dates: start: 20100420, end: 20100422
  2. HUMULIN 30% REGULAR, 70% NPH [Suspect]
     Dosage: 32 u, each evening
     Route: 058
     Dates: start: 20100420, end: 20100422

REACTIONS (5)
  - Deafness [Recovered/Resolved]
  - Tinnitus [Recovered/Resolved]
  - Blood pressure diastolic decreased [Recovered/Resolved]
  - Nausea [Recovered/Resolved]
  - Diarrhoea [Recovered/Resolved]
